FAERS Safety Report 6761362-3 (Version None)
Quarter: 2010Q2

REPORT INFORMATION
  Report Type: 
  Country: None (occurrence: None)
  Receive Date: 20100607
  Receipt Date: 20100521
  Transmission Date: 20101027
  Serious: Yes (Other)
  Sender: FDA-Public Use
  Company Number: 2010002126

PATIENT
  Age: 69 Year
  Sex: Female
  Weight: 48.4 kg

DRUGS (13)
  1. ERLOTINIB (ERLOTINIB) (TABLET) (ERLOTINIB) [Suspect]
     Indication: LUNG SQUAMOUS CELL CARCINOMA STAGE UNSPECIFIED
     Dosage: 150 MG, QD, ORAL
     Route: 048
     Dates: start: 20090911, end: 20091126
  2. DOCETAXEL [Suspect]
     Indication: LUNG SQUAMOUS CELL CARCINOMA STAGE UNSPECIFIED
     Dosage: 90 MG, QD, INTRAVENOUS DRIP
     Route: 041
     Dates: start: 20091023, end: 20091112
  3. LAFUTIDINE [Concomitant]
  4. KETOPROFEN [Concomitant]
  5. ZOLPIDEM TARTRATE [Concomitant]
  6. FERROMIA (FERROUS CITRATE) [Concomitant]
  7. GLYSENNID [Concomitant]
  8. LOXONIN (LOXOPROFEN SODIUM) [Concomitant]
  9. DECADRON [Concomitant]
  10. HYDROCORTISONE SODIUM SUCCINATE [Concomitant]
  11. POLARAMINE [Concomitant]
  12. ZANTAC 150 [Concomitant]
  13. ZOFRAN [Concomitant]

REACTIONS (6)
  - DIARRHOEA [None]
  - DRY SKIN [None]
  - NEUTROPHIL COUNT DECREASED [None]
  - RASH [None]
  - STOMATITIS [None]
  - WHITE BLOOD CELL COUNT DECREASED [None]
